FAERS Safety Report 9227976 (Version 1)
Quarter: 2013Q2

REPORT INFORMATION
  Report Type: Spontaneous
  Country: US (occurrence: None)
  Receive Date: 20130411
  Receipt Date: 20130411
  Transmission Date: 20140414
  Serious: Yes (Other)
  Sender: FDA-Public Use
  Company Number: None

PATIENT
  Age: 67 Year
  Sex: Female
  Weight: 60.78 kg

DRUGS (1)
  1. ACTONEL [Suspect]
     Indication: MENOPAUSAL SYMPTOMS
     Dosage: 1 TAB WEEKLY PO
     Route: 048
     Dates: start: 20020605, end: 20090608

REACTIONS (3)
  - Arthralgia [None]
  - Pelvic pain [None]
  - Osteoporosis [None]
